FAERS Safety Report 5005918-7 (Version None)
Quarter: 2006Q2

REPORT INFORMATION
  Report Type: 
  Country: None (occurrence: None)
  Receive Date: 20060517
  Receipt Date: 20060517
  Transmission Date: 20061013
  Serious: Yes (Disabling, Other)
  Sender: FDA-Public Use
  Company Number: None

PATIENT
  Age: 66 Year
  Sex: Female
  Weight: 85.2762 kg

DRUGS (1)
  1. WALGREENS COLD RELIEF PLUS [Suspect]
     Indication: NASOPHARYNGITIS
     Dates: start: 20041120

REACTIONS (2)
  - AGEUSIA [None]
  - ANOSMIA [None]
